FAERS Safety Report 4673108-3 (Version None)
Quarter: 2005Q2

REPORT INFORMATION
  Report Type: 
  Country: None (occurrence: None)
  Receive Date: 20050525
  Receipt Date: 20050517
  Transmission Date: 20051028
  Serious: Yes (Hospitalization)
  Sender: FDA-Public Use
  Company Number: US-ABBOTT-05P-163-0300651-00

PATIENT
  Sex: Female

DRUGS (13)
  1. HUMIRA [Suspect]
     Indication: RHEUMATOID ARTHRITIS
     Route: 058
     Dates: start: 20030901, end: 20050307
  2. HUMIRA [Suspect]
     Route: 058
     Dates: start: 20050401
  3. FUROSEMIDE [Concomitant]
     Indication: DIURETIC THERAPY
  4. CLONIDINE [Concomitant]
     Indication: HYPERTENSION
  5. PREDNISONE [Concomitant]
     Indication: RHEUMATOID ARTHRITIS
  6. MORPHINE SULFATE [Concomitant]
     Indication: PAIN
     Route: 048
  7. CALCITONIN [Concomitant]
     Indication: OSTEOPOROSIS
  8. LABETALOL [Concomitant]
     Indication: BLOOD PRESSURE
     Route: 048
  9. ACETYLSALICYLIC ACID [Concomitant]
     Indication: PROPHYLAXIS
     Route: 048
  10. AMLODIPINE BESYLATE [Concomitant]
     Indication: BLOOD PRESSURE
     Route: 048
  11. RESTASIS [Concomitant]
     Indication: DRY EYE
     Route: 048
  12. ALENDRONATE SODIUM [Concomitant]
     Indication: OSTEOPOROSIS
     Route: 048
  13. FOLIC ACID [Concomitant]
     Indication: VITAMIN SUPPLEMENTATION
     Route: 048

REACTIONS (3)
  - ALANINE AMINOTRANSFERASE INCREASED [None]
  - ASPARTATE AMINOTRANSFERASE INCREASED [None]
  - SUBACUTE ENDOCARDITIS [None]
